FAERS Safety Report 4978175-5 (Version None)
Quarter: 2006Q2

REPORT INFORMATION
  Report Type: 
  Country: None (occurrence: None)
  Receive Date: 20060417
  Receipt Date: 20060405
  Transmission Date: 20061013
  Serious: Yes (Hospitalization)
  Sender: FDA-Public Use
  Company Number: 223359

PATIENT
  Age: 55 Year
  Sex: Male
  Weight: 72 kg

DRUGS (17)
  1. AVASTIN [Suspect]
     Indication: COLORECTAL CANCER METASTATIC
     Dosage: 581 MG, QOW, INTRAVENOUS
     Route: 042
     Dates: start: 20060308, end: 20060308
  2. ERBITUX [Suspect]
     Indication: COLORECTAL CANCER METASTATIC
     Dosage: SEE IMAGE
     Route: 042
     Dates: start: 20060308, end: 20060315
  3. FLUOUROURACIL (FLUOROURACIL) [Suspect]
     Indication: COLORECTAL CANCER METASTATIC
     Dosage: SEE IMAGE
     Route: 042
     Dates: start: 20060308, end: 20060308
  4. FLUOUROURACIL (FLUOROURACIL) [Suspect]
     Indication: COLORECTAL CANCER METASTATIC
     Dosage: SEE IMAGE
     Route: 042
     Dates: start: 20060308, end: 20060308
  5. LEUCOVORIN CALCIUM [Suspect]
     Indication: COLORECTAL CANCER METASTATIC
     Dosage: 968 MG, QOW, INTRAVENOUS
     Route: 042
     Dates: start: 20060308, end: 20060308
  6. MAGIC MOUTH WASH (INGREDIENTS UNK) (MOUTHWASH NOS) [Concomitant]
  7. DIFLUCAN [Concomitant]
  8. MAGNESIUM CITRATE (MAGNESIUM CITRATE) [Concomitant]
  9. ACYCLOVIR [Concomitant]
  10. HEMOCYTE (FERROUS FUMARATE) [Concomitant]
  11. LORTAB [Concomitant]
  12. MORPHINE SULFATE [Concomitant]
  13. ZIAC [Concomitant]
  14. CLINDAMYCIN [Concomitant]
  15. TRIAMCINOLONE [Concomitant]
  16. PHENERGAN (PROMETHAZINE HYDROCHLORIDE) [Concomitant]
  17. GLUCOTROL XL [Concomitant]

REACTIONS (15)
  - ANAEMIA [None]
  - ANOREXIA [None]
  - BACTERAEMIA [None]
  - BLOOD GLUCOSE INCREASED [None]
  - CATHETER SITE INFECTION [None]
  - DIABETES MELLITUS INADEQUATE CONTROL [None]
  - GASTRITIS [None]
  - HYPOXIA [None]
  - IRON DEFICIENCY [None]
  - MEAN CELL VOLUME DECREASED [None]
  - NEOPLASM MALIGNANT [None]
  - PLATELET COUNT INCREASED [None]
  - SEPSIS SYNDROME [None]
  - STAPHYLOCOCCAL INFECTION [None]
  - THALASSAEMIA TRAIT [None]
